FAERS Safety Report 18502233 (Version 1)
Quarter: 2020Q4

REPORT INFORMATION
  Report Type: Spontaneous
  Country: US (occurrence: US)
  Receive Date: 20201113
  Receipt Date: 20201113
  Transmission Date: 20210114
  Serious: No
  Sender: FDA-Public Use
  Company Number: US-SUNOVION-2020SUN003319

PATIENT
  Age: 35 Year
  Sex: Female

DRUGS (2)
  1. LATUDA [Suspect]
     Active Substance: LURASIDONE HYDROCHLORIDE
     Dosage: 1/4 TAB OF A LATUDA 40MG
     Route: 048
     Dates: start: 20201027, end: 20201027
  2. LATUDA [Suspect]
     Active Substance: LURASIDONE HYDROCHLORIDE
     Indication: BIPOLAR DISORDER
     Dosage: 1/2 TAB OF A LATUDA 40MG
     Route: 048
     Dates: start: 20201028, end: 20201028

REACTIONS (4)
  - Throat tightness [Recovered/Resolved]
  - Wrong technique in product usage process [Unknown]
  - Underdose [Unknown]
  - Dysphonia [Recovered/Resolved]

NARRATIVE: CASE EVENT DATE: 20201027
